FAERS Safety Report 13835575 (Version 1)
Quarter: 2017Q3

REPORT INFORMATION
  Report Type: Report from Study
  Country: None (occurrence: FI)
  Receive Date: 20170804
  Receipt Date: 20170804
  Transmission Date: 20171127
  Serious: Yes (Hospitalization)
  Sender: FDA-Public Use
  Company Number: FI-ABBVIE-17K-055-2060884-00

PATIENT
  Age: 75 Year
  Sex: Female

DRUGS (2)
  1. DUODOPA [Suspect]
     Active Substance: CARBIDOPA\LEVODOPA
     Indication: PARKINSON^S DISEASE
     Dosage: MORNING 13 ML, CONTINUOUS 3.2 ML, EXTRA 3 ML, 16 H TREATMENT
     Route: 050
     Dates: start: 2014
  2. EXEMESTAN [Concomitant]
     Active Substance: EXEMESTANE
     Indication: NEOPLASM MALIGNANT

REACTIONS (2)
  - Pleural effusion [Not Recovered/Not Resolved]
  - Device alarm issue [Unknown]

NARRATIVE: CASE EVENT DATE: 2017
